FAERS Safety Report 9146110 (Version 2)
Quarter: 2013Q2

REPORT INFORMATION
  Report Type: Spontaneous
  Country: NL (occurrence: NL)
  Receive Date: 20130307
  Receipt Date: 20130617
  Transmission Date: 20140414
  Serious: Yes (Other)
  Sender: FDA-Public Use
  Company Number: PHHY2013NL021737

PATIENT
  Sex: Male

DRUGS (2)
  1. GILENYA [Suspect]
     Indication: RELAPSING-REMITTING MULTIPLE SCLEROSIS
     Dosage: 0.5 MG, QD
     Route: 048
     Dates: start: 20120523, end: 20130213
  2. CYMBALTA [Concomitant]
     Dosage: 1 DF, QD
     Dates: start: 2011

REACTIONS (2)
  - Hemiparesis [Recovering/Resolving]
  - Central nervous system lesion [Recovering/Resolving]
